FAERS Safety Report 13670205 (Version 2)
Quarter: 2017Q2

REPORT INFORMATION
  Report Type: Report from Study
  Country: US (occurrence: US)
  Receive Date: 20170620
  Receipt Date: 20170622
  Transmission Date: 20170830
  Serious: Yes (Other)
  Sender: FDA-Public Use
  Company Number: US-AMGEN-USASL2017093382

PATIENT
  Age: 51 Year
  Sex: Female

DRUGS (1)
  1. ENBREL [Suspect]
     Active Substance: ETANERCEPT
     Indication: PSORIATIC ARTHROPATHY
     Dosage: 50 MG, QWK
     Route: 065

REACTIONS (10)
  - Rheumatoid arthritis [Unknown]
  - Respiratory tract congestion [Unknown]
  - Pyrexia [Unknown]
  - Injection site irritation [Unknown]
  - Fatigue [Unknown]
  - Oropharyngeal pain [Unknown]
  - Spinal pain [Unknown]
  - Ear congestion [Unknown]
  - Eye inflammation [Unknown]
  - Injection site pruritus [Unknown]

NARRATIVE: CASE EVENT DATE: 2017
